FAERS Safety Report 9853808 (Version 6)
Quarter: 2017Q2

REPORT INFORMATION
  Report Type: Spontaneous
  Country: US (occurrence: US)
  Receive Date: 20140129
  Receipt Date: 20170616
  Transmission Date: 20170830
  Serious: Yes (Other)
  Sender: FDA-Public Use
  Company Number: US-GLAXOSMITHKLINE-A1044414A

PATIENT
  Sex: Female
  Weight: 82.6 kg

DRUGS (6)
  1. ATORVASTATIN TABLET [Suspect]
     Active Substance: ATORVASTATIN
  2. SIMVASTATIN FILM-COATED TABLET [Suspect]
     Active Substance: SIMVASTATIN
  3. GABAPENTIN. [Suspect]
     Active Substance: GABAPENTIN
     Indication: PRODUCT USED FOR UNKNOWN INDICATION
     Dosage: UNK, U
     Route: 048
     Dates: start: 2002, end: 2005
  4. BUPROPION TABLET [Suspect]
     Active Substance: BUPROPION
     Indication: PRODUCT USED FOR UNKNOWN INDICATION
     Dosage: UNK UNK, U
     Route: 048
     Dates: start: 2001
  5. WELLBUTRIN [Suspect]
     Active Substance: BUPROPION HYDROCHLORIDE
     Indication: SMOKING CESSATION THERAPY
     Dosage: UNK
     Dates: start: 2007
  6. NEURONTIN [Suspect]
     Active Substance: GABAPENTIN

REACTIONS (6)
  - Suicidal ideation [Recovered/Resolved]
  - Pruritus [Unknown]
  - Headache [Unknown]
  - Off label use [Unknown]
  - Anxiety [Unknown]
  - Drug hypersensitivity [Unknown]
